FAERS Safety Report 8462657-8 (Version None)
Quarter: 2012Q2

REPORT INFORMATION
  Report Type: 
  Country: None (occurrence: None)
  Receive Date: 20120619
  Receipt Date: 20120619
  Transmission Date: 20120825
  Serious: Yes (Disabling, Other)
  Sender: FDA-Public Use
  Company Number: None

PATIENT
  Age: 47 Year
  Sex: Male
  Weight: 79.3795 kg

DRUGS (4)
  1. PANTOPRAZOLE [Suspect]
     Indication: BARRETT'S OESOPHAGUS
  2. PANTOPRAZOLE [Suspect]
     Indication: GASTROOESOPHAGEAL REFLUX DISEASE
  3. PROTONIX [Suspect]
     Indication: GASTROOESOPHAGEAL REFLUX DISEASE
     Dosage: 1 TABLET, ONCE DAILY AT AM, PO
     Route: 048
     Dates: start: 20111205, end: 20120618
  4. PROTONIX [Suspect]
     Indication: BARRETT'S OESOPHAGUS
     Dosage: 1 TABLET, ONCE DAILY AT AM, PO
     Route: 048
     Dates: start: 20111205, end: 20120618

REACTIONS (4)
  - BURSITIS [None]
  - PARAESTHESIA [None]
  - PAIN IN EXTREMITY [None]
  - ARTHRALGIA [None]
